FAERS Safety Report 10411250 (Version 2)
Quarter: 2014Q3

REPORT INFORMATION
  Report Type: Spontaneous
  Country: US (occurrence: US)
  Receive Date: 20140826
  Receipt Date: 20140826
  Transmission Date: 20150326
  Serious: No
  Sender: FDA-Public Use
  Company Number: US-ASTRAZENECA-2013SE61364

PATIENT
  Age: 931 Month
  Sex: Female

DRUGS (6)
  1. SYMBICORT [Suspect]
     Active Substance: BUDESONIDE\FORMOTEROL FUMARATE DIHYDRATE
     Dosage: 160/4.5 UG 1 PUFF TWO TIMES A DAY
     Route: 055
     Dates: start: 201201
  2. MEDICATIONS FOR CHOLESTEROL [Concomitant]
     Indication: BLOOD CHOLESTEROL ABNORMAL
  3. MEDICATIONS FOR BLOOD PRESSURE [Concomitant]
     Indication: BLOOD PRESSURE ABNORMAL
  4. MEDICATIONS FOR THYROID [Concomitant]
     Indication: THYROID DISORDER
  5. PROAIR HFA [Concomitant]
     Active Substance: ALBUTEROL SULFATE
     Indication: INHALATION THERAPY
     Dosage: PRN
     Route: 055
  6. MEDICATIONS FOR DEPRESSION [Concomitant]
     Indication: DEPRESSION

REACTIONS (4)
  - Circumstance or information capable of leading to medication error [Recovered/Resolved]
  - Intentional product misuse [Unknown]
  - Dyspnoea [Not Recovered/Not Resolved]
  - Feeling abnormal [Not Recovered/Not Resolved]

NARRATIVE: CASE EVENT DATE: 201201
